FAERS Safety Report 5528315-4 (Version None)
Quarter: 2007Q4

REPORT INFORMATION
  Report Type: 
  Country: None (occurrence: None)
  Receive Date: 20071121
  Receipt Date: 20071109
  Transmission Date: 20080405
  Serious: Yes (Other)
  Sender: FDA-Public Use
  Company Number: 163897ISR

PATIENT
  Age: 50 Year
  Sex: Male

DRUGS (3)
  1. BECLOMETHASONE DIPROPIONATE [Suspect]
     Indication: ASTHMA
     Dosage: (2 IN 1 D) RESPIRATORY (INHALATION)
     Route: 055
  2. BUDESONIDE [Suspect]
     Indication: ASTHMA
     Dosage: 400 MCG (200 MCG, 2 IN 1 D) RESPIRATORY (INHALATION)
     Route: 055
  3. FLUTICASONE PROPIONATE [Suspect]
     Indication: ASTHMA
     Dosage: 100 MCG (50 MCG, 2 IN 1 D) RESPIRATORY (INHALATION)
     Route: 055

REACTIONS (1)
  - PALPITATIONS [None]
